FAERS Safety Report 8979448 (Version 2)
Quarter: 2013Q1

REPORT INFORMATION
  Report Type: Spontaneous
  Country: US (occurrence: US)
  Receive Date: 20121221
  Receipt Date: 20130129
  Transmission Date: 20140127
  Serious: No
  Sender: FDA-Public Use
  Company Number: US-009507513-1212USA008220

PATIENT
  Age: 23 Year
  Sex: Female
  Weight: 55.78 kg

DRUGS (1)
  1. IMPLANON [Suspect]
     Indication: CONTRACEPTION
     Dosage: 3  YEARS
     Route: 059
     Dates: start: 20121217

REACTIONS (1)
  - Implant site pain [Not Recovered/Not Resolved]
